FAERS Safety Report 19512396 (Version 2)
Quarter: 2021Q4

REPORT INFORMATION
  Report Type: Spontaneous
  Country: US (occurrence: US)
  Receive Date: 20210709
  Receipt Date: 20211001
  Transmission Date: 20220303
  Serious: Yes (Life-Threatening, Hospitalization, Other)
  Sender: FDA-Public Use
  Company Number: US-DRREDDYS-SPO/USA/21/0137354

PATIENT
  Age: 47 Year
  Sex: Male

DRUGS (3)
  1. FENTANYL CITRATE [Suspect]
     Active Substance: FENTANYL CITRATE
     Indication: Product used for unknown indication
     Dosage: INFUSION
  2. FENTANYL CITRATE [Suspect]
     Active Substance: FENTANYL CITRATE
     Dosage: INFUSION
  3. OXYGEN [Concomitant]
     Active Substance: OXYGEN
     Indication: Oxygen therapy

REACTIONS (2)
  - Pulmonary function test decreased [Recovered/Resolved]
  - Muscle rigidity [Recovered/Resolved]
